FAERS Safety Report 5395147-X (Version None)
Quarter: 2007Q3

REPORT INFORMATION
  Report Type: 
  Country: None (occurrence: None)
  Receive Date: 20070724
  Receipt Date: 20070717
  Transmission Date: 20080115
  Serious: Yes (Hospitalization)
  Sender: FDA-Public Use
  Company Number: FI-AVENTIS-200713518EU

PATIENT
  Age: 76 Year
  Sex: Male

DRUGS (14)
  1. KLEXANE                            /01708202/ [Suspect]
     Route: 058
     Dates: start: 20070619
  2. PLAVIX [Suspect]
     Route: 048
     Dates: start: 20070619
  3. PLAVIX [Suspect]
     Route: 048
  4. MAREVAN [Suspect]
     Route: 048
     Dates: end: 20070619
  5. ASPIRIN [Suspect]
     Dates: start: 20070619
  6. MICARDIS HCT [Concomitant]
     Route: 048
  7. BETAXOLOL [Concomitant]
     Route: 048
  8. DIGOXIN [Concomitant]
     Route: 048
  9. CRESTOR [Concomitant]
     Route: 048
  10. ORAMET [Concomitant]
     Route: 048
  11. SYMBICORT [Concomitant]
  12. SPIRIVA [Concomitant]
     Route: 055
  13. ADALAT [Concomitant]
     Route: 048
  14. FURESIS [Concomitant]
     Route: 048

REACTIONS (8)
  - EROSIVE DUODENITIS [None]
  - GASTRIC ULCER HAEMORRHAGE [None]
  - GASTROINTESTINAL HAEMORRHAGE [None]
  - HAEMATEMESIS [None]
  - HAEMOGLOBIN DECREASED [None]
  - HYPOTENSION [None]
  - MELAENA [None]
  - MYOCARDIAL INFARCTION [None]
